FAERS Safety Report 8103614-0 (Version None)
Quarter: 2012Q1

REPORT INFORMATION
  Report Type: 
  Country: None (occurrence: None)
  Receive Date: 20120201
  Receipt Date: 20120117
  Transmission Date: 20120608
  Serious: Yes (Other)
  Sender: FDA-Public Use
  Company Number: US-WATSON-2012-00582

PATIENT
  Sex: Female

DRUGS (13)
  1. ATORVASTATIN CALCIUM [Concomitant]
     Indication: PRODUCT USED FOR UNKNOWN INDICATION
     Dosage: UNK
     Route: 065
  2. FOLPLEX [Concomitant]
     Indication: PRODUCT USED FOR UNKNOWN INDICATION
     Dosage: UNK
     Route: 065
  3. PRENATAL VITAMINS                  /01549301/ [Concomitant]
     Indication: PRODUCT USED FOR UNKNOWN INDICATION
     Dosage: UNK
     Route: 065
  4. LAMICTAL [Suspect]
     Indication: BIPOLAR II DISORDER
     Dosage: 300 MG
     Route: 048
     Dates: start: 20010101
  5. LEXAPRO [Suspect]
     Indication: DEPRESSIVE SYMPTOM
     Dosage: UNK
     Route: 065
  6. NORTRIPTYLINE HCL [Concomitant]
     Indication: PRODUCT USED FOR UNKNOWN INDICATION
     Dosage: UNK
     Route: 065
  7. MICROGESTIN FE 1.5/30 [Suspect]
     Indication: CONTRACEPTION
     Dosage: UNK
     Route: 065
  8. WELLBUTRIN XL [Suspect]
     Indication: DEPRESSIVE SYMPTOM
     Dosage: UNK
     Route: 048
  9. LAMOTRIGINE [Suspect]
     Indication: BIPOLAR II DISORDER
     Dosage: 300 MG
     Route: 048
  10. OXCARBAZEPINE [Concomitant]
     Indication: PRODUCT USED FOR UNKNOWN INDICATION
     Dosage: UNK
     Route: 065
  11. ZIPRASIDONE HYDROCHLORIDE [Suspect]
     Indication: PRODUCT USED FOR UNKNOWN INDICATION
     Dosage: UNK
     Route: 065
  12. VENLAFAXINE [Suspect]
     Indication: DEPRESSIVE SYMPTOM
     Dosage: UNK
     Route: 065
  13. FISH OIL [Concomitant]
     Indication: PRODUCT USED FOR UNKNOWN INDICATION
     Dosage: UNK
     Route: 065

REACTIONS (11)
  - DISTURBANCE IN ATTENTION [None]
  - DEPRESSION [None]
  - ABORTION SPONTANEOUS [None]
  - OVERDOSE [None]
  - DRUG LEVEL DECREASED [None]
  - BEDRIDDEN [None]
  - STRESS [None]
  - MATERNAL EXPOSURE DURING PREGNANCY [None]
  - DISABILITY [None]
  - ACTIVITIES OF DAILY LIVING IMPAIRED [None]
  - HYPERSOMNIA [None]
